FAERS Safety Report 20553784 (Version 1)
Quarter: 2022Q1

REPORT INFORMATION
  Report Type: Spontaneous
  Country: US (occurrence: US)
  Receive Date: 20220304
  Receipt Date: 20220304
  Transmission Date: 20220424
  Serious: Yes (Hospitalization, Other)
  Sender: FDA-Public Use
  Company Number: US-LA JOLLA PHARMACEUTICAL COMPANY-0000404

PATIENT

DRUGS (8)
  1. GIAPREZA [Suspect]
     Active Substance: ANGIOTENSIN II
     Indication: Vasoplegia syndrome
     Dosage: 10 NG/KG/MIN
  2. GIAPREZA [Suspect]
     Active Substance: ANGIOTENSIN II
     Dosage: 40 NG/KG/MIN
  3. NOREPINEPHRINE [Concomitant]
     Active Substance: NOREPINEPHRINE
     Indication: Vasoplegia syndrome
     Dosage: 0.50 MCG/KG/MIN
  4. VASOPRESSIN [Concomitant]
     Active Substance: VASOPRESSIN
     Indication: Vasoplegia syndrome
     Dosage: 0.08 UNITS/MIN
  5. HYDROCORTISONE [Concomitant]
     Active Substance: HYDROCORTISONE
     Indication: Product used for unknown indication
  6. METHYLENE BLUE [Concomitant]
     Active Substance: METHYLENE BLUE
     Indication: Product used for unknown indication
  7. ASCORBIC ACID [Concomitant]
     Active Substance: ASCORBIC ACID
     Indication: Product used for unknown indication
  8. THIAMINE [Concomitant]
     Active Substance: THIAMINE
     Indication: Product used for unknown indication

REACTIONS (2)
  - Acute hepatic failure [Unknown]
  - Colitis ischaemic [Unknown]
